FAERS Safety Report 4365376-2 (Version None)
Quarter: 2004Q2

REPORT INFORMATION
  Report Type: 
  Country: None (occurrence: None)
  Receive Date: 20040525
  Receipt Date: 20040514
  Transmission Date: 20050107
  Serious: Yes (Hospitalization)
  Sender: FDA-Public Use
  Company Number: 2004032774

PATIENT
  Age: 60 Year
  Sex: Male

DRUGS (2)
  1. TAHOR (ATORVASTATIN) [Suspect]
     Indication: ILL-DEFINED DISORDER
  2. CLOPIDOGREL BISULFATE [Suspect]
     Indication: SURGERY

REACTIONS (2)
  - DRUG INTERACTION [None]
  - HAEMORRHAGE [None]
